FAERS Safety Report 9311312 (Version 3)
Quarter: 2013Q3

REPORT INFORMATION
  Report Type: Spontaneous
  Country: US (occurrence: None)
  Receive Date: 20130327
  Receipt Date: 20130815
  Transmission Date: 20140515
  Serious: Yes (Other)
  Sender: FDA-Public Use
  Company Number: ADR-2013-00410

PATIENT
  Sex: Male

DRUGS (1)
  1. LIORESAL [Suspect]
     Indication: MUSCLE SPASTICITY

REACTIONS (9)
  - Shoulder operation [None]
  - Joint dislocation [None]
  - Joint stiffness [None]
  - Hypertonia [None]
  - Joint dislocation [None]
  - Movement disorder [None]
  - Joint stiffness [None]
  - Cerebrovascular accident [None]
  - Hypertonia [None]
